FAERS Safety Report 11381818 (Version 1)
Quarter: 2015Q3

REPORT INFORMATION
  Report Type: Spontaneous
  Country: FR (occurrence: FR)
  Receive Date: 20150814
  Receipt Date: 20150814
  Transmission Date: 20151125
  Serious: Yes (Hospitalization)
  Sender: FDA-Public Use
  Company Number: FR-009507513-1508FRA005573

PATIENT
  Age: 71 Year
  Sex: Male

DRUGS (14)
  1. RIMACTAN [Suspect]
     Active Substance: RIFAMPIN
     Indication: STAPHYLOCOCCAL INFECTION
     Dosage: 300 MG, TID
     Route: 048
     Dates: start: 20150514
  2. RIMACTAN [Suspect]
     Active Substance: RIFAMPIN
     Indication: STERNITIS
  3. RIMACTAN [Suspect]
     Active Substance: RIFAMPIN
     Indication: POST PROCEDURAL INFECTION
  4. CEFTRIAXONE (NGX) [Suspect]
     Active Substance: CEFTRIAXONE
     Indication: STAPHYLOCOCCAL INFECTION
     Dosage: 2 G, QD
     Route: 042
     Dates: start: 20150526
  5. CEFTRIAXONE (NGX) [Suspect]
     Active Substance: CEFTRIAXONE
     Indication: STERNITIS
  6. AMLODIPINE [Concomitant]
     Active Substance: AMLODIPINE BESYLATE
     Dosage: UNK
  7. KARDEGIC [Concomitant]
     Active Substance: ASPIRIN LYSINE
     Dosage: UNK
  8. CEFTRIAXONE (NGX) [Suspect]
     Active Substance: CEFTRIAXONE
     Indication: POST PROCEDURAL INFECTION
  9. CORDARONE [Concomitant]
     Active Substance: AMIODARONE HYDROCHLORIDE
     Dosage: UNK
  10. DAPTOMYCIN. [Suspect]
     Active Substance: DAPTOMYCIN
     Indication: STERNITIS
  11. COUMADIN [Concomitant]
     Active Substance: WARFARIN SODIUM
     Dosage: UNK
  12. TAHOR [Concomitant]
     Active Substance: ATORVASTATIN CALCIUM
     Dosage: UNK
  13. DAPTOMYCIN. [Suspect]
     Active Substance: DAPTOMYCIN
     Indication: STAPHYLOCOCCAL INFECTION
     Dosage: 500 MG, QD
     Route: 042
     Dates: start: 20150509, end: 20150618
  14. DAPTOMYCIN. [Suspect]
     Active Substance: DAPTOMYCIN
     Indication: POST PROCEDURAL INFECTION

REACTIONS (2)
  - Cough [Recovered/Resolved]
  - Hyperthermia [Recovered/Resolved]

NARRATIVE: CASE EVENT DATE: 20150604
